FAERS Safety Report 25183270 (Version 1)
Quarter: 2025Q2

REPORT INFORMATION
  Report Type: Spontaneous
  Country: US (occurrence: US)
  Receive Date: 20250410
  Receipt Date: 20250410
  Transmission Date: 20250716
  Serious: No
  Sender: BAUSCH AND LOMB
  Company Number: US-BAUSCH-BL-2025-004408

PATIENT
  Age: 72 Year
  Sex: Female

DRUGS (3)
  1. JUBLIA [Suspect]
     Active Substance: EFINACONAZOLE
     Indication: Onychomycosis
     Route: 061
     Dates: start: 202407
  2. CORTISONE [Concomitant]
     Active Substance: CORTISONE
     Indication: Onychomycosis
     Route: 065
  3. ATHLETES FOOT [Concomitant]
     Indication: Onychomycosis
     Route: 065

REACTIONS (6)
  - Rash [Unknown]
  - Drug hypersensitivity [Unknown]
  - Application site dermatitis [Unknown]
  - Application site irritation [Unknown]
  - Product use issue [Unknown]
  - Incorrect dose administered [Unknown]
